FAERS Safety Report 5120198-X (Version None)
Quarter: 2006Q3

REPORT INFORMATION
  Report Type: 
  Country: None (occurrence: None)
  Receive Date: 20060928
  Receipt Date: 20060915
  Transmission Date: 20061208
  Serious: Yes (Other)
  Sender: FDA-Public Use
  Company Number: 2006111004

PATIENT
  Age: 72 Year
  Sex: Male

DRUGS (2)
  1. VIAGRA [Suspect]
     Indication: ERECTILE DYSFUNCTION
     Dosage: 50 MG (50 MG, AS NECESSARY), ORAL
     Route: 048
     Dates: start: 20040101
  2. OMEPRAZOLE [Concomitant]

REACTIONS (3)
  - DRUG INEFFECTIVE [None]
  - EMPHYSEMA [None]
  - PHARMACEUTICAL PRODUCT COMPLAINT [None]
